FAERS Safety Report 9248195 (Version 4)
Quarter: 2013Q4

REPORT INFORMATION
  Report Type: Spontaneous
  Country: US (occurrence: US)
  Receive Date: 20130423
  Receipt Date: 20131224
  Transmission Date: 20140711
  Serious: Yes (Disabling, Other)
  Sender: FDA-Public Use
  Company Number: US-ASTRAZENECA-2013SE27467

PATIENT
  Age: 35 Year
  Sex: Male

DRUGS (35)
  1. NEXIUM [Suspect]
     Indication: GASTROOESOPHAGEAL REFLUX DISEASE
     Route: 048
     Dates: start: 1987
  2. NEXIUM [Suspect]
     Indication: GASTROOESOPHAGEAL REFLUX DISEASE
     Route: 048
     Dates: start: 20030904
  3. NEXIUM [Suspect]
     Indication: GASTROOESOPHAGEAL REFLUX DISEASE
     Route: 048
     Dates: start: 20100206
  4. PRILOSEC [Suspect]
     Route: 048
  5. PREVACID [Concomitant]
     Dosage: OTC
  6. ZANTAC [Concomitant]
     Dosage: AS NEEDED
  7. TAGAMET [Concomitant]
     Dosage: AS NEEDED
  8. ROLAIDS OTC [Concomitant]
  9. TUMS [Concomitant]
  10. ALKASELTZER [Concomitant]
  11. MILK OF MAGNESIA [Concomitant]
  12. PEPTO BISMOL [Concomitant]
     Dosage: 30 CC TAKE TWICE A DAY WITH THE ANTIBIOTICS
     Dates: start: 20090630
  13. LOTRIL [Concomitant]
     Dosage: 10.40 MG
  14. NITROGLYCERIN [Concomitant]
  15. HYDROCODONE/APAP [Concomitant]
     Indication: PAIN
     Dosage: 10/650
     Dates: start: 20100308
  16. HYDROCODONE/APAP [Concomitant]
     Indication: PAIN
     Dosage: TAKE ONE EVERY FOUR HOURS
     Dates: start: 20110311
  17. PREDNISONE [Concomitant]
     Dates: start: 20050517
  18. STRATTERA [Concomitant]
     Dates: start: 20050617
  19. DIAZEPAM [Concomitant]
     Dates: start: 20050601
  20. CYCLOBENZAPRINE [Concomitant]
     Dates: start: 20050523
  21. CARISOPRODOL [Concomitant]
     Dates: start: 20040503
  22. PROMETHAZINE HCL [Concomitant]
     Dates: start: 20040407
  23. NEURONTIN [Concomitant]
     Dates: start: 20060125
  24. SKELAXIN [Concomitant]
     Dates: start: 20020905
  25. NAPROXEN [Concomitant]
     Dates: start: 20020905
  26. CLONIDINE [Concomitant]
     Dates: start: 20030203
  27. PROPRANOLOL [Concomitant]
     Dates: start: 20030203
  28. BENICAR/HCTZ [Concomitant]
     Dosage: 40/12.5 MG TAKE ONE TAB PER DAY
     Dates: start: 20090629
  29. TETRACYCLINE [Concomitant]
     Dates: start: 20090630
  30. METRONIDAZOLE [Concomitant]
     Dates: start: 20090630
  31. NORVASC [Concomitant]
     Indication: BLOOD PRESSURE
     Dates: start: 20090630
  32. INDOMETHACIN [Concomitant]
     Indication: ARTHRALGIA
     Dates: start: 20110311
  33. INDOMETHACIN [Concomitant]
     Indication: INFLAMMATION
     Dates: start: 20110311
  34. XANAX [Concomitant]
     Indication: ANXIETY
     Dates: start: 201308
  35. XANAX [Concomitant]
     Indication: SLEEP DISORDER
     Dates: start: 201308

REACTIONS (9)
  - Myocardial infarction [Unknown]
  - Back disorder [Unknown]
  - Osteoporosis [Unknown]
  - Intervertebral disc protrusion [Unknown]
  - Bone disorder [Unknown]
  - Multiple fractures [Unknown]
  - Chest pain [Unknown]
  - Arthritis [Unknown]
  - Osteopenia [Unknown]
